FAERS Safety Report 22184367 (Version 1)
Quarter: 2023Q2

REPORT INFORMATION
  Report Type: Report from Study
  Country: CR (occurrence: CR)
  Receive Date: 20230407
  Receipt Date: 20230407
  Transmission Date: 20230722
  Serious: Yes (Other)
  Sender: FDA-Public Use
  Company Number: CR-BAYER-2023A044859

PATIENT
  Sex: Female

DRUGS (2)
  1. XARELTO [Suspect]
     Active Substance: RIVAROXABAN
     Indication: Product used for unknown indication
     Dosage: 15 MG
     Route: 048
     Dates: start: 2013
  2. XARELTO [Suspect]
     Active Substance: RIVAROXABAN
     Dosage: 20 MG
     Route: 048
     Dates: start: 2017

REACTIONS (2)
  - Cerebrovascular accident [Unknown]
  - Wheelchair user [Unknown]

NARRATIVE: CASE EVENT DATE: 20170101
